FAERS Safety Report 4370238-0 (Version None)
Quarter: 2004Q2

REPORT INFORMATION
  Report Type: 
  Country: None (occurrence: None)
  Receive Date: 20040603
  Receipt Date: 20040323
  Transmission Date: 20050107
  Serious: No
  Sender: FDA-Public Use
  Company Number: US-BRISTOL-MYERS SQUIBB COMPANY-12539979

PATIENT
  Age: 47 Year
  Sex: Female
  Weight: 113 kg

DRUGS (6)
  1. ABILIFY [Suspect]
     Indication: AFFECTIVE DISORDER
     Route: 048
     Dates: start: 20031201
  2. ACETAMINOPHEN [Concomitant]
  3. CELEXA [Concomitant]
  4. COLACE [Concomitant]
  5. CLARITIN [Concomitant]
  6. TRICOR [Concomitant]

REACTIONS (1)
  - SOMNOLENCE [None]
